FAERS Safety Report 6035220-6 (Version None)
Quarter: 2009Q1

REPORT INFORMATION
  Report Type: 
  Country: None (occurrence: None)
  Receive Date: 20090109
  Receipt Date: 20081226
  Transmission Date: 20090719
  Serious: Yes (Hospitalization)
  Sender: FDA-Public Use
  Company Number: 005258

PATIENT
  Age: 80 Year
  Sex: Male
  Weight: 62.6 kg

DRUGS (2)
  1. PLETAL [Suspect]
     Indication: CEREBRAL INFARCTION
     Dates: start: 20080804, end: 20081017
  2. NORVASC [Suspect]
     Indication: HYPERTENSION
     Dosage: 5 MG, QAM ORAL
     Route: 048

REACTIONS (5)
  - ADENOCARCINOMA [None]
  - GASTRIC CANCER [None]
  - GASTRIC ULCER [None]
  - MALAISE [None]
  - PROCEDURAL COMPLICATION [None]
